FAERS Safety Report 8893972 (Version 1)
Quarter: 2012Q4

REPORT INFORMATION
  Report Type: 
  Country: US (occurrence: US)
  Receive Date: 20121107
  Receipt Date: 20121107
  Transmission Date: 20130627
  Serious: No
  Sender: FDA-Public Use
  Company Number: US-AMGEN-USASP2011060163

PATIENT
  Age: 67 Year
  Sex: Male
  Weight: 129.25 kg

DRUGS (8)
  1. ENBREL [Suspect]
     Indication: PRODUCT USED FOR UNKNOWN INDICATION
     Dosage: 50 mg, qwk
  2. LISINOPRIL [Concomitant]
     Dosage: 5 mg, UNK
  3. HYDROCHLOROTH [Concomitant]
     Dosage: 12.5 mg, UNK
  4. MULTIVITAMIN [Concomitant]
  5. VITAMIN C [Concomitant]
     Dosage: 500 mg, UNK
  6. FISH OIL [Concomitant]
  7. STOOL SOFTENER [Concomitant]
     Dosage: 100 mg, UNK
  8. GLUCOSAMIN CHONDR [Concomitant]
     Dosage: UNK

REACTIONS (1)
  - Cellulitis [Unknown]
